FAERS Safety Report 9432870 (Version 4)
Quarter: 2014Q3

REPORT INFORMATION
  Report Type: Spontaneous
  Country: DK (occurrence: DK)
  Receive Date: 20130731
  Receipt Date: 20140902
  Transmission Date: 20150326
  Serious: Yes (Hospitalization, Other)
  Sender: FDA-Public Use
  Company Number: PHHY2013DK079175

PATIENT
  Age: 48 Year
  Sex: Female

DRUGS (3)
  1. VINORELBINE [Concomitant]
     Active Substance: VINORELBINE\VINORELBINE TARTRATE
     Indication: BREAST CANCER METASTATIC
     Dosage: UNK UKN, UNK
     Dates: start: 2011
  2. ZOMETA [Suspect]
     Active Substance: ZOLEDRONIC ACID
     Indication: METASTASES TO BONE
     Dosage: 4 MG/100ML, EVERY 6 MONTHS
     Route: 042
     Dates: start: 201106, end: 201301
  3. HERCEPTIN [Concomitant]
     Active Substance: TRASTUZUMAB
     Indication: METASTASES TO BONE
     Dosage: UNK UKN, UNK
     Dates: start: 2011

REACTIONS (10)
  - Tooth abscess [Unknown]
  - Impaired healing [Unknown]
  - Mouth swelling [Unknown]
  - Sequestrectomy [Recovered/Resolved]
  - Tooth extraction [Unknown]
  - Exposed bone in jaw [Unknown]
  - Osteonecrosis of jaw [Recovered/Resolved with Sequelae]
  - Metastases to liver [Unknown]
  - Pain in jaw [Unknown]
  - Fistula [Unknown]

NARRATIVE: CASE EVENT DATE: 2012
